FAERS Safety Report 14659780 (Version 1)
Quarter: 2018Q1

REPORT INFORMATION
  Report Type: Spontaneous
  Country: HK (occurrence: HK)
  Receive Date: 20180320
  Receipt Date: 20180320
  Transmission Date: 20180509
  Serious: Yes (Life-Threatening, Hospitalization, Other)
  Sender: FDA-Public Use
  Company Number: HK-MYLANLABS-2018M1016725

PATIENT
  Age: 35 Year
  Sex: Female

DRUGS (3)
  1. AMITRIPTYLINE [Suspect]
     Active Substance: AMITRIPTYLINE
     Indication: DEPRESSION
     Dosage: 100MG DAILY
     Route: 048
  2. AMITRIPTYLINE [Suspect]
     Active Substance: AMITRIPTYLINE
     Dosage: 30-40 AMITRIPTYLINE 25MG TABLETS
     Route: 048
  3. CHLORPHENIRAMINE                   /00072501/ [Suspect]
     Active Substance: CHLORPHENIRAMINE
     Indication: PRODUCT USED FOR UNKNOWN INDICATION
     Dosage: 20-30 CHLORPHENAMINE 4MG TABLETS
     Route: 048

REACTIONS (10)
  - Overdose [Recovered/Resolved]
  - Depressed level of consciousness [Recovered/Resolved]
  - Cyanosis [Recovered/Resolved]
  - Hypotension [Recovered/Resolved]
  - Maternal exposure during pregnancy [Recovered/Resolved]
  - Electrocardiogram QRS complex prolonged [Recovered/Resolved]
  - Toxicity to various agents [Recovered/Resolved]
  - Pneumonia [Recovered/Resolved]
  - Gait disturbance [Recovered/Resolved]
  - Sinus tachycardia [Recovered/Resolved]
